FAERS Safety Report 9293838 (Version 1)
Quarter: 2013Q2

REPORT INFORMATION
  Report Type: Spontaneous
  Country: GB (occurrence: GB)
  Receive Date: 20130516
  Receipt Date: 20130516
  Transmission Date: 20140414
  Serious: Yes (Other)
  Sender: FDA-Public Use
  Company Number: PHHY2012GB074515

PATIENT
  Age: 52 Year
  Sex: Female

DRUGS (8)
  1. AMISULPRIDE [Suspect]
     Indication: SCHIZOPHRENIA, PARANOID TYPE
     Dosage: 600 MG
     Dates: start: 201106, end: 201109
  2. FUROSEMIDE [Suspect]
     Indication: OEDEMA PERIPHERAL
     Dates: start: 2011
  3. ZAPONEX [Suspect]
     Indication: SCHIZOPHRENIA, PARANOID TYPE
     Dosage: 175 MG, QD
     Route: 048
     Dates: start: 20110921
  4. BISOPROLOL [Concomitant]
     Indication: SINUS TACHYCARDIA
     Dosage: 1.25 MG, QD
     Dates: start: 201110
  5. BISOPROLOL [Concomitant]
     Dosage: 5 MG
     Dates: start: 20120808
  6. TERBINAFINE [Concomitant]
     Indication: NAIL DISORDER
     Route: 061
  7. CHLORHEXIDINE [Concomitant]
     Route: 048
  8. CLEXANE [Concomitant]
     Route: 058
     Dates: start: 201103

REACTIONS (11)
  - Iatrogenic injury [Not Recovered/Not Resolved]
  - Oedema peripheral [Unknown]
  - Glucose tolerance impaired [Unknown]
  - Right atrial dilatation [Unknown]
  - Sinus tachycardia [Unknown]
  - Speech disorder [Recovered/Resolved]
  - Wrong drug administered [Not Recovered/Not Resolved]
  - Choking [Unknown]
  - Hypoacusis [Not Recovered/Not Resolved]
  - Vaginal haemorrhage [Unknown]
  - Vomiting [Unknown]
